APPROVED DRUG PRODUCT: DIAZEPAM
Active Ingredient: DIAZEPAM
Strength: 10MG
Dosage Form/Route: TABLET;ORAL
Application: A070464 | Product #001 | TE Code: AB
Applicant: NUVO PHARMACEUTICAL INC
Approved: Feb 25, 1986 | RLD: No | RS: No | Type: RX